FAERS Safety Report 8108329-0 (Version None)
Quarter: 2012Q1

REPORT INFORMATION
  Report Type: 
  Country: None (occurrence: None)
  Receive Date: 20120202
  Receipt Date: 20120111
  Transmission Date: 20120608
  Serious: No
  Sender: FDA-Public Use
  Company Number: US-AMGEN-USASP2012002113

PATIENT
  Age: 68 Year
  Sex: Female

DRUGS (2)
  1. ENBREL [Suspect]
     Indication: RHEUMATOID ARTHRITIS
  2. ENBREL [Suspect]
     Indication: PSORIASIS
     Dosage: 50 MG, QWK
     Dates: start: 20110101, end: 20110601

REACTIONS (13)
  - ASTHENIA [None]
  - UPPER-AIRWAY COUGH SYNDROME [None]
  - NAIL BED INFECTION FUNGAL [None]
  - NAIL GROWTH ABNORMAL [None]
  - PAIN IN EXTREMITY [None]
  - SKIN DISCOLOURATION [None]
  - HERPES ZOSTER [None]
  - RASH [None]
  - PSORIASIS [None]
  - URTICARIA [None]
  - NAIL DISCOLOURATION [None]
  - LIMB INJURY [None]
  - PAIN [None]
